FAERS Safety Report 7638751-8 (Version None)
Quarter: 2011Q3

REPORT INFORMATION
  Report Type: 
  Country: None (occurrence: None)
  Receive Date: 20110718
  Receipt Date: 20110113
  Transmission Date: 20111222
  Serious: Yes (Hospitalization)
  Sender: FDA-Public Use
  Company Number: 20101219CINRY1744

PATIENT
  Age: 28 Year
  Sex: Female

DRUGS (11)
  1. ZOLOFT [Concomitant]
  2. MORPHINE [Concomitant]
  3. AMBIEN [Concomitant]
  4. OXYCODONE HCL [Concomitant]
  5. OBETROL [Concomitant]
  6. AMITRIPTYLINE HCL [Concomitant]
  7. CINRYZE [Suspect]
     Indication: HEREDITARY ANGIOEDEMA
     Dosage: (1000 UNIT 2 IN 1 WK), INTRAVENOUS
     Route: 042
     Dates: start: 20101101
  8. CINRYZE [Suspect]
     Indication: PROPHYLAXIS
     Dosage: (1000 UNIT 2 IN 1 WK), INTRAVENOUS
     Route: 042
     Dates: start: 20101101
  9. RISPERDAL [Concomitant]
  10. XANAX [Concomitant]
  11. OPANA [Concomitant]

REACTIONS (4)
  - HEREDITARY ANGIOEDEMA [None]
  - STRESS [None]
  - ANGIOEDEMA [None]
  - CONDITION AGGRAVATED [None]
